FAERS Safety Report 19965744 (Version 4)
Quarter: 2022Q2

REPORT INFORMATION
  Report Type: Spontaneous
  Country: US (occurrence: US)
  Receive Date: 20211018
  Receipt Date: 20220531
  Transmission Date: 20220721
  Serious: Yes (Other)
  Sender: FDA-Public Use
  Company Number: US-PFIZER INC-2021879418

PATIENT
  Age: 83 Year
  Sex: Female

DRUGS (1)
  1. XELJANZ XR [Suspect]
     Active Substance: TOFACITINIB CITRATE
     Indication: Rheumatoid arthritis
     Dosage: 11 MG, DAILY
     Route: 048
     Dates: start: 202012

REACTIONS (7)
  - Cataract [Recovered/Resolved]
  - Pain [Unknown]
  - Mobility decreased [Unknown]
  - Drug ineffective [Unknown]
  - Product dose omission issue [Unknown]
  - Product dose omission in error [Unknown]
  - Memory impairment [Unknown]
